FAERS Safety Report 5875105-9 (Version None)
Quarter: 2008Q3

REPORT INFORMATION
  Report Type: 
  Country: None (occurrence: None)
  Receive Date: 20080909
  Receipt Date: 20080908
  Transmission Date: 20090109
  Serious: Yes (Death, Hospitalization)
  Sender: FDA-Public Use
  Company Number: A0746325A

PATIENT
  Age: 91 Year
  Sex: Male

DRUGS (1)
  1. COREG [Suspect]
     Indication: DRUG USE FOR UNKNOWN INDICATION
     Dosage: 10MG PER DAY
     Route: 048
     Dates: start: 20070801, end: 20080621

REACTIONS (4)
  - CHOLECYSTITIS [None]
  - MYOCARDIAL INFARCTION [None]
  - PANCREATITIS [None]
  - SMALL INTESTINAL PERFORATION [None]
